FAERS Safety Report 23356870 (Version 1)
Quarter: 2023Q4

REPORT INFORMATION
  Report Type: Spontaneous
  Country: US (occurrence: None)
  Receive Date: 20231229
  Receipt Date: 20231229
  Transmission Date: 20240109
  Serious: Yes (Hospitalization)
  Sender: FDA-Public Use
  Company Number: None

PATIENT
  Sex: Female

DRUGS (8)
  1. HUMIRA [Suspect]
     Active Substance: ADALIMUMAB
     Indication: Psoriasis
     Dosage: 40 MG/0.4ML  SUBCUTANEOUS??INJECT 1 SYRINGE UNDER THE SKIN (SUBCUTANEOUS INJECTION) EVEY OTHER WEEK
     Route: 058
     Dates: start: 20190507
  2. HUMIRA [Suspect]
     Active Substance: ADALIMUMAB
     Dosage: OTHER QUANTITY : 1 SYRINGE;?FREQUENCY : EVERY OTHER WEEK;?
     Route: 058
  3. COENZYME Q10 [Concomitant]
     Active Substance: DIETARY SUPPLEMENT\UBIDECARENONE
  4. FOLIC ACID [Concomitant]
     Active Substance: FOLIC ACID
  5. GLUCOSAMINE [Concomitant]
     Active Substance: GLUCOSAMINE
  6. LEXAPRO [Concomitant]
     Active Substance: ESCITALOPRAM OXALATE
  7. METHOTREXATE [Concomitant]
     Active Substance: METHOTREXATE
  8. VITAMIN E [Concomitant]
     Active Substance: .ALPHA.-TOCOPHEROL

REACTIONS (2)
  - Pain [None]
  - Therapy interrupted [None]
